FAERS Safety Report 7609945-2 (Version None)
Quarter: 2011Q3

REPORT INFORMATION
  Report Type: 
  Country: None (occurrence: None)
  Receive Date: 20110714
  Receipt Date: 20110211
  Transmission Date: 20111222
  Serious: Yes (Death, Other)
  Sender: FDA-Public Use
  Company Number: US-TYCO HEALTHCARE/MALLINCKRODT-T201100289

PATIENT
  Age: 27 Year
  Sex: Female

DRUGS (2)
  1. OXYCODONE HCL [Suspect]
     Dosage: UNK
     Dates: end: 20101201
  2. COCAINE [Suspect]
     Dosage: UNK
     Dates: end: 20101201

REACTIONS (2)
  - SOMNOLENCE [None]
  - OVERDOSE [None]
